FAERS Safety Report 5794517-5 (Version None)
Quarter: 2008Q2

REPORT INFORMATION
  Report Type: 
  Country: None (occurrence: None)
  Receive Date: 20080625
  Receipt Date: 20080612
  Transmission Date: 20081010
  Serious: Yes (Other)
  Sender: FDA-Public Use
  Company Number: 035-20785-08060995

PATIENT

DRUGS (2)
  1. THALIDOMIDE [Suspect]
     Indication: MYELODYSPLASTIC SYNDROME
     Dosage: 200-400 MG, DAILY; ORAL
     Route: 048
     Dates: start: 20001001, end: 20051001
  2. CYCLOSPORINE [Suspect]
     Indication: MYELODYSPLASTIC SYNDROME
     Dosage: 3 MG/KG, DAILY;
     Dates: start: 20001001, end: 20051001

REACTIONS (2)
  - HEPATIC LESION [None]
  - NEPHROPATHY TOXIC [None]
